FAERS Safety Report 26026909 (Version 1)
Quarter: 2025Q4

REPORT INFORMATION
  Report Type: Report from Study
  Country: CN (occurrence: CN)
  Receive Date: 20251111
  Receipt Date: 20251111
  Transmission Date: 20260117
  Serious: Yes (Other)
  Sender: ROCHE
  Company Number: CN-ROCHE-10000298064

PATIENT
  Age: 62 Year
  Sex: Male
  Weight: 70.5 kg

DRUGS (40)
  1. POLATUZUMAB VEDOTIN [Suspect]
     Active Substance: POLATUZUMAB VEDOTIN
     Indication: Diffuse large B-cell lymphoma
     Route: 042
     Dates: start: 20240321, end: 20240321
  2. POLATUZUMAB VEDOTIN [Suspect]
     Active Substance: POLATUZUMAB VEDOTIN
     Route: 042
     Dates: start: 20240810, end: 20240810
  3. RITUXIMAB [Suspect]
     Active Substance: RITUXIMAB
     Indication: Diffuse large B-cell lymphoma
     Route: 042
     Dates: start: 20240319, end: 20240319
  4. RITUXIMAB [Suspect]
     Active Substance: RITUXIMAB
     Route: 042
     Dates: start: 20240808, end: 20240808
  5. CYCLOPHOSPHAMIDE [Suspect]
     Active Substance: CYCLOPHOSPHAMIDE
     Indication: Diffuse large B-cell lymphoma
     Route: 042
     Dates: start: 20240320, end: 20240320
  6. CYCLOPHOSPHAMIDE [Suspect]
     Active Substance: CYCLOPHOSPHAMIDE
     Route: 042
     Dates: start: 20240809, end: 20240809
  7. DOXORUBICIN HYDROCHLORIDE [Suspect]
     Active Substance: DOXORUBICIN HYDROCHLORIDE
     Indication: Diffuse large B-cell lymphoma
     Route: 042
     Dates: start: 20240320, end: 20240320
  8. PREDNISONE ACETATE [Suspect]
     Active Substance: PREDNISONE ACETATE
     Indication: Diffuse large B-cell lymphoma
     Route: 048
     Dates: start: 20240320, end: 20240322
  9. Biapenem for injection [Concomitant]
     Route: 042
     Dates: start: 20240513
  10. Teicoplanin for injection [Concomitant]
     Route: 042
     Dates: start: 20240513
  11. CEFTIZOXIME SODIUM [Concomitant]
     Active Substance: CEFTIZOXIME SODIUM
     Route: 042
  12. SULFAMETHOXAZOLE [Concomitant]
     Active Substance: SULFAMETHOXAZOLE
     Route: 048
  13. DEXAMETHASONE SODIUM PHOSPHATE [Concomitant]
     Active Substance: DEXAMETHASONE SODIUM PHOSPHATE
     Dates: start: 20240716, end: 20240716
  14. Entecavir Tablets [Concomitant]
     Route: 048
  15. Compound Amiloride Hydrochloride Tablets [Concomitant]
     Route: 048
     Dates: start: 20240715, end: 20240718
  16. Compound Amiloride Hydrochloride Tablets [Concomitant]
     Route: 048
     Dates: end: 20240811
  17. FEBUXOSTAT [Concomitant]
     Active Substance: FEBUXOSTAT
     Route: 048
     Dates: start: 20240715, end: 20240718
  18. FEBUXOSTAT [Concomitant]
     Active Substance: FEBUXOSTAT
     Route: 048
     Dates: end: 20240811
  19. Magnesium Isoglycyrrhizinate Injection [Concomitant]
     Route: 042
     Dates: start: 20240715, end: 20240718
  20. Magnesium Isoglycyrrhizinate Injection [Concomitant]
     Route: 042
     Dates: end: 20240811
  21. Rabeprazole Sodium for Injection [Concomitant]
     Route: 042
     Dates: start: 20240715, end: 20240718
  22. SODIUM BICARBONATE [Concomitant]
     Active Substance: SODIUM BICARBONATE
     Route: 042
     Dates: start: 20240715, end: 20240718
  23. SODIUM BICARBONATE [Concomitant]
     Active Substance: SODIUM BICARBONATE
     Route: 042
     Dates: end: 20240811
  24. Calcium Carbonate and Vitamin D3 Tablets [Concomitant]
     Route: 048
     Dates: start: 20240715, end: 20240718
  25. Calcium Carbonate and Vitamin D3 Tablets [Concomitant]
     Route: 048
     Dates: end: 20240811
  26. METHOTREXATE [Concomitant]
     Active Substance: METHOTREXATE
     Route: 050
     Dates: start: 20240716, end: 20240716
  27. PROMETHAZINE [Concomitant]
     Active Substance: PROMETHAZINE HYDROCHLORIDE
     Route: 030
     Dates: start: 20240716, end: 20240716
  28. PROMETHAZINE [Concomitant]
     Active Substance: PROMETHAZINE HYDROCHLORIDE
     Route: 030
  29. Dexrazoxan [Concomitant]
     Route: 042
     Dates: start: 20240717, end: 20240717
  30. Dexrazoxan [Concomitant]
     Route: 042
  31. Fosappitan dimeglumine [Concomitant]
     Route: 042
     Dates: start: 20240717, end: 20240717
  32. Fosappitan dimeglumine [Concomitant]
     Route: 042
  33. PEGylated Recombinant Human Granulocyte Colony-Stimulating Factor Inje [Concomitant]
     Route: 058
     Dates: start: 20240718, end: 20240718
  34. PEGylated Recombinant Human Granulocyte Colony-Stimulating Factor Inje [Concomitant]
     Route: 058
     Dates: start: 20240811, end: 20240811
  35. Diammonium Glycyrrhizinate Enteric-coated Capsules [Concomitant]
     Route: 048
     Dates: start: 20240718, end: 20240721
  36. Roxatidine Acetate Hydrochloride For Injection [Concomitant]
     Route: 042
     Dates: end: 20240811
  37. Human Granulocyte Colony-stimulating Factor Injection [Concomitant]
     Route: 058
     Dates: start: 202409, end: 202409
  38. Recombinant Human Granulocyte Colony-stimulating Factor Injection [Concomitant]
     Route: 058
     Dates: start: 20240911, end: 20240911
  39. Recombinant Human Erythropoietin Injection(CHO cell) [Concomitant]
     Route: 058
     Dates: start: 20240715, end: 20240718
  40. RECOMBINANT HUMAN THROMBOPOIETIN [Concomitant]
     Active Substance: RECOMBINANT HUMAN THROMBOPOIETIN
     Route: 058
     Dates: start: 202408, end: 202408

REACTIONS (1)
  - Electrocardiogram ST segment elevation [Recovered/Resolved]

NARRATIVE: CASE EVENT DATE: 20240808
